FAERS Safety Report 6974165-1 (Version None)
Quarter: 2010Q3

REPORT INFORMATION
  Report Type: 
  Country: None (occurrence: None)
  Receive Date: 20100909
  Receipt Date: 20100903
  Transmission Date: 20110219
  Serious: Yes (Hospitalization)
  Sender: FDA-Public Use
  Company Number: US-GILEAD-2010-0031640

PATIENT
  Sex: Female

DRUGS (7)
  1. LETAIRIS [Suspect]
     Indication: COR PULMONALE
     Dates: start: 20081210
  2. REVATIO [Concomitant]
     Indication: COR PULMONALE
     Route: 048
     Dates: start: 20090120
  3. COUMADIN [Concomitant]
     Indication: COR PULMONALE
     Route: 048
     Dates: start: 20080415
  4. IMURAN [Concomitant]
     Indication: COR PULMONALE
     Dates: start: 20071017
  5. LEVOXYL [Concomitant]
     Dates: start: 20081110
  6. PAXIL [Concomitant]
     Dates: start: 20070516
  7. PROTONIX [Concomitant]
     Indication: REFLUX OESOPHAGITIS
     Dates: start: 20070130

REACTIONS (2)
  - DYSPNOEA [None]
  - PULMONARY FIBROSIS [None]
